FAERS Safety Report 24173106 (Version 2)
Quarter: 2024Q3

REPORT INFORMATION
  Report Type: Spontaneous
  Country: US (occurrence: US)
  Receive Date: 20240805
  Receipt Date: 20240927
  Transmission Date: 20241017
  Serious: No
  Sender: PFIZER
  Company Number: US-PFIZER INC-202400222953

PATIENT
  Age: 13 Year
  Sex: Female
  Weight: 45.36 kg

DRUGS (2)
  1. GENOTROPIN [Suspect]
     Active Substance: SOMATROPIN
     Indication: Short stature
     Dosage: EITHER 1.6MG OR 1.7MG, PATIENT TAKES FOR SIX DAYS OUT OF SEVEN DAYS
     Route: 058
  2. GENOTROPIN [Suspect]
     Active Substance: SOMATROPIN
     Dosage: EITHER 1.6MG OR 1.7MG, PATIENT TAKES FOR SIX DAYS OUT OF SEVEN DAYS
     Route: 058

REACTIONS (1)
  - Device leakage [Unknown]
